FAERS Safety Report 6371189-2 (Version None)
Quarter: 2009Q3

REPORT INFORMATION
  Report Type: 
  Country: None (occurrence: None)
  Receive Date: 20090923
  Receipt Date: 20070815
  Transmission Date: 20100115
  Serious: Yes (Other)
  Sender: FDA-Public Use
  Company Number: US-ASTRAZENECA-2006UW27486

PATIENT
  Age: 50 Year
  Sex: Male
  Weight: 98.4 kg

DRUGS (21)
  1. SEROQUEL [Suspect]
     Indication: BIPOLAR DISORDER
     Dosage: 300-500 MG
     Route: 048
     Dates: start: 20030101
  2. SEROQUEL [Suspect]
     Indication: DEPRESSION
     Dosage: 300-500 MG
     Route: 048
     Dates: start: 20030101
  3. SEROQUEL [Suspect]
     Dosage: 100-200 MG
     Route: 048
     Dates: start: 20040211
  4. SEROQUEL [Suspect]
     Dosage: 100-200 MG
     Route: 048
     Dates: start: 20040211
  5. RISPERDAL [Concomitant]
     Dates: start: 20030101, end: 20060101
  6. CYMBALTA [Concomitant]
  7. ATIVAN [Concomitant]
  8. DEPAKOTE [Concomitant]
  9. LEXAPRO [Concomitant]
     Route: 048
     Dates: start: 20051005
  10. AMBIEN [Concomitant]
     Dosage: 10-12.5 MG
     Route: 048
     Dates: start: 20040227
  11. TRAZODONE [Concomitant]
     Dosage: 50-100 MG
     Route: 048
     Dates: start: 20031108
  12. LOVASTATIN [Concomitant]
     Route: 048
     Dates: start: 20051005
  13. LISINOPRIL AND HYDROCHLOROTHIAZIDE [Concomitant]
     Dosage: 12.5/10 MG
     Route: 048
     Dates: start: 20051005
  14. DIAZEPAM [Concomitant]
     Dates: start: 20031007
  15. ZOLOFT [Concomitant]
     Dates: start: 20031014
  16. ZYPREXA [Concomitant]
     Dates: start: 20031108
  17. TOPROL-XL [Concomitant]
     Dates: start: 20031110
  18. PAXIL CR [Concomitant]
     Dates: start: 20040227
  19. PROTONIX [Concomitant]
     Dates: start: 20040227
  20. VERAPAMIL [Concomitant]
     Dates: start: 20040227
  21. MIRTAZAPINE [Concomitant]
     Dates: start: 20040302

REACTIONS (5)
  - BLOOD CHOLESTEROL INCREASED [None]
  - DIABETES MELLITUS [None]
  - OBESITY [None]
  - TARDIVE DYSKINESIA [None]
  - TYPE 2 DIABETES MELLITUS [None]
